FAERS Safety Report 5012743-X (Version None)
Quarter: 2006Q2

REPORT INFORMATION
  Report Type: 
  Country: None (occurrence: None)
  Receive Date: 20060530
  Receipt Date: 20050628
  Transmission Date: 20061013
  Serious: Yes (Other)
  Sender: FDA-Public Use
  Company Number: US-BRISTOL-MYERS SQUIBB COMPANY-13019864

PATIENT
  Age: 51 Year
  Sex: Male
  Weight: 64 kg

DRUGS (8)
  1. ERBITUX [Suspect]
     Indication: COLORECTAL CANCER STAGE IV
     Dosage: CYCLE 4 ADMINISTERED 28-JUN-05.
     Route: 042
  2. IRINOTECAN HCL [Concomitant]
  3. BENADRYL [Concomitant]
     Indication: PREMEDICATION
  4. KYTRIL [Concomitant]
     Indication: PREMEDICATION
  5. ATROPINE [Concomitant]
     Indication: PREMEDICATION
  6. DECADRON SRC [Concomitant]
     Indication: PREMEDICATION
  7. LOPERAMIDE [Concomitant]
  8. REGLAN [Concomitant]
     Dosage: 250 MG EVERY 6 HOURS AS NEEDED.

REACTIONS (1)
  - BLOOD MAGNESIUM DECREASED [None]
